FAERS Safety Report 5135514-2 (Version None)
Quarter: 2006Q4

REPORT INFORMATION
  Report Type: 
  Country: None (occurrence: None)
  Receive Date: 20061026
  Receipt Date: 20061016
  Transmission Date: 20070319
  Serious: Yes (Hospitalization)
  Sender: FDA-Public Use
  Company Number: FR-JNJFOC-20060903400

PATIENT
  Sex: Male

DRUGS (14)
  1. RISPERDAL CONSTA [Suspect]
     Indication: PERSONALITY DISORDER
     Route: 030
  2. RISPERDAL [Suspect]
     Indication: PERSONALITY DISORDER
     Route: 048
  3. CLOPIXOL [Concomitant]
     Route: 065
  4. LOXAPAC [Concomitant]
  5. TEGRETOL [Concomitant]
  6. ATHYMIL [Concomitant]
  7. RIVOTRIL [Concomitant]
  8. MEPRONIZINE [Concomitant]
  9. LEPTICUR [Concomitant]
  10. PAROXETINE HCL [Concomitant]
  11. ABILIFY [Concomitant]
  12. CLOPIXOL [Concomitant]
  13. SOLIAN [Concomitant]
  14. ALPRAZOLAM [Concomitant]

REACTIONS (6)
  - AGGRESSION [None]
  - BLADDER DISTENSION [None]
  - LEUKOCYTOSIS [None]
  - NEUROLEPTIC MALIGNANT SYNDROME [None]
  - PERSONALITY DISORDER [None]
  - SOMNOLENCE [None]
